FAERS Safety Report 8048493-5 (Version None)
Quarter: 2011Q4

REPORT INFORMATION
  Report Type: 
  Country: None (occurrence: None)
  Receive Date: 20111209
  Receipt Date: 20111025
  Transmission Date: 20120403
  Serious: No
  Sender: FDA-Public Use
  Company Number: 2011SP050180

PATIENT
  Age: 52 Year
  Sex: Male
  Weight: 93.1 kg

DRUGS (1)
  1. VICTRELIS [Suspect]
     Indication: PRODUCT USED FOR UNKNOWN INDICATION
     Dosage: 800 MG;TID; PO
     Route: 048
     Dates: start: 20111017

REACTIONS (1)
  - NAUSEA [None]
